FAERS Safety Report 20901241 (Version 1)
Quarter: 2022Q2

REPORT INFORMATION
  Report Type: Report from Study
  Country: US (occurrence: US)
  Receive Date: 20220601
  Receipt Date: 20220601
  Transmission Date: 20220720
  Serious: Yes (Other)
  Sender: FDA-Public Use
  Company Number: US-GLAXOSMITHKLINE-US2022AMR084047

PATIENT

DRUGS (1)
  1. SUMATRIPTAN SUCCINATE [Suspect]
     Active Substance: SUMATRIPTAN SUCCINATE
     Indication: Migraine
     Dosage: 100 MG
     Dates: start: 202205

REACTIONS (4)
  - Bipolar disorder [Unknown]
  - Vomiting [Unknown]
  - Extra dose administered [Unknown]
  - Drug ineffective [Unknown]
